FAERS Safety Report 9404595 (Version 1)
Quarter: 2013Q3

REPORT INFORMATION
  Report Type: Spontaneous
  Country: US (occurrence: US)
  Receive Date: 20130717
  Receipt Date: 20130717
  Transmission Date: 20140515
  Serious: No
  Sender: FDA-Public Use
  Company Number: US-PFIZER INC-2013208378

PATIENT
  Age: 54 Year
  Sex: Male
  Weight: 122 kg

DRUGS (8)
  1. EFFEXOR XR [Suspect]
     Indication: DEPRESSION
     Dosage: (TWO CAPSULES OF 75MG IN MORNING AND ONE CAPSULE IN EVENING), 2X/DAY
     Route: 048
     Dates: end: 20130712
  2. EFFEXOR XR [Suspect]
     Indication: ASTHENIA
  3. SOMA [Concomitant]
     Indication: MUSCLE RELAXANT THERAPY
     Dosage: 350 MG, 3X/DAY
  4. GABAPENTIN [Concomitant]
     Indication: DIABETIC NEUROPATHY
     Dosage: 300 MG, 3X/DAY
  5. FLEXERIL [Concomitant]
     Indication: MUSCLE SPASMS
     Dosage: 10 MG, 3X/DAY
  6. NORCO [Concomitant]
     Indication: ARTHRITIS
     Dosage: 325 MG, 4X/DAY
  7. NORCO [Concomitant]
     Indication: MYALGIA
  8. FLOMAX [Concomitant]
     Indication: DYSURIA
     Dosage: 0.4 MG, 1X/DAY

REACTIONS (2)
  - Depression [Not Recovered/Not Resolved]
  - Neuralgia [Not Recovered/Not Resolved]
